FAERS Safety Report 24858862 (Version 1)
Quarter: 2025Q1

REPORT INFORMATION
  Report Type: Spontaneous
  Country: PT (occurrence: PT)
  Receive Date: 20250118
  Receipt Date: 20250118
  Transmission Date: 20250408
  Serious: Yes (Other)
  Sender: ABBVIE
  Company Number: None

PATIENT
  Age: 29 Year
  Sex: Male
  Weight: 86 kg

DRUGS (1)
  1. CARIPRAZINE [Suspect]
     Active Substance: CARIPRAZINE
     Indication: Burnout syndrome
     Dosage: 1.5MG
     Route: 048
     Dates: start: 20220917

REACTIONS (2)
  - Restlessness [Not Recovered/Not Resolved]
  - Product use in unapproved indication [Not Recovered/Not Resolved]

NARRATIVE: CASE EVENT DATE: 20220917
